FAERS Safety Report 5964365-1 (Version None)
Quarter: 2008Q4

REPORT INFORMATION
  Report Type: 
  Country: None (occurrence: None)
  Receive Date: 20081124
  Receipt Date: 20081112
  Transmission Date: 20090506
  Serious: Yes (Death)
  Sender: FDA-Public Use
  Company Number: JP-PFIZER INC-2008096345

PATIENT
  Age: 63 Year
  Sex: Male

DRUGS (9)
  1. MYCOBUTIN [Suspect]
     Indication: ATYPICAL MYCOBACTERIAL INFECTION
     Dosage: DAILY DOSE:150MG
     Route: 048
     Dates: start: 20081015, end: 20081022
  2. MYCOBUTIN [Suspect]
     Indication: CHRONIC OBSTRUCTIVE PULMONARY DISEASE
     Dosage: DAILY DOSE:300MG
     Route: 048
     Dates: start: 20081023
  3. MEDICON [Concomitant]
     Dates: start: 20081015
  4. FAMOTIDINE [Concomitant]
     Dates: start: 20081015
  5. TULOBUTEROL [Concomitant]
     Dates: start: 20081015
  6. MUCOSOLVAN [Concomitant]
     Dates: start: 20081015
  7. CRAVIT [Concomitant]
     Dates: start: 20081015
  8. ALFAROL [Concomitant]
     Dates: start: 20081015
  9. CLARITHROMYCIN [Concomitant]
     Dates: start: 20081015

REACTIONS (2)
  - RESPIRATORY ARREST [None]
  - SPUTUM RETENTION [None]
